FAERS Safety Report 20901380 (Version 1)
Quarter: 2022Q2

REPORT INFORMATION
  Report Type: Report from Study
  Country: CA (occurrence: CA)
  Receive Date: 20220601
  Receipt Date: 20220601
  Transmission Date: 20220721
  Serious: Yes (Other)
  Sender: FDA-Public Use
  Company Number: CA-ABBVIE-22K-028-4414284-00

PATIENT
  Sex: Male

DRUGS (1)
  1. HUMIRA [Suspect]
     Active Substance: ADALIMUMAB
     Indication: Hidradenitis
     Route: 058
     Dates: start: 20190107

REACTIONS (10)
  - Asphyxia [Unknown]
  - Acne [Unknown]
  - Skin laceration [Unknown]
  - Skin haemorrhage [Unknown]
  - Eye disorder [Unknown]
  - Glaucoma [Unknown]
  - Exophthalmos [Unknown]
  - Wound infection [Unknown]
  - Rash [Not Recovered/Not Resolved]
  - Hidradenitis [Not Recovered/Not Resolved]

NARRATIVE: CASE EVENT DATE: 20210101
